FAERS Safety Report 25467036 (Version 1)
Quarter: 2025Q2

REPORT INFORMATION
  Report Type: Spontaneous
  Country: CZ (occurrence: CZ)
  Receive Date: 20250623
  Receipt Date: 20250623
  Transmission Date: 20250717
  Serious: Yes (Hospitalization, Other)
  Sender: NOVARTIS
  Company Number: None

PATIENT
  Age: 46 Year
  Sex: Female
  Weight: 101 kg

DRUGS (2)
  1. KESIMPTA [Suspect]
     Active Substance: OFATUMUMAB
     Indication: Multiple sclerosis
     Dosage: 20 MG, QMO
     Route: 058
     Dates: start: 20221116, end: 20250414
  2. MAGNESIUM CARBONATE\MAGNESIUM OXIDE [Concomitant]
     Active Substance: MAGNESIUM CARBONATE\MAGNESIUM OXIDE
     Indication: Muscle spasms
     Dosage: 365 MG, QD, (GRANULES FOR ORAL SOLUTION IN SACHET)
     Route: 065
     Dates: start: 20241105

REACTIONS (1)
  - Ovarian cancer [Not Recovered/Not Resolved]

NARRATIVE: CASE EVENT DATE: 20250301
